FAERS Safety Report 4944500-4 (Version None)
Quarter: 2006Q1

REPORT INFORMATION
  Report Type: 
  Country: None (occurrence: None)
  Receive Date: 20060315
  Receipt Date: 20060303
  Transmission Date: 20060701
  Serious: Yes (Other)
  Sender: FDA-Public Use
  Company Number: JP-SANOFI-SYNTHELABO-A01200601727

PATIENT
  Age: 74 Year
  Sex: Female

DRUGS (3)
  1. ZOLPIDEM TARTRATE [Suspect]
     Indication: INSOMNIA
     Dosage: 5 MG
     Route: 048
     Dates: start: 20051201, end: 20051201
  2. ZOLPIDEM TARTRATE [Suspect]
     Dosage: 10 MG
     Route: 048
     Dates: start: 20051202, end: 20051202
  3. PAXIL [Concomitant]
     Indication: DRUG USE FOR UNKNOWN INDICATION
     Dosage: 10 MG
     Route: 048
     Dates: start: 20051201, end: 20051202

REACTIONS (1)
  - DELIRIUM [None]
